FAERS Safety Report 8429363-7 (Version None)
Quarter: 2012Q2

REPORT INFORMATION
  Report Type: 
  Country: None (occurrence: None)
  Receive Date: 20120612
  Receipt Date: 20120530
  Transmission Date: 20120825
  Serious: Yes (Other)
  Sender: FDA-Public Use
  Company Number: US-SHIRE-ALL1-2012-02719

PATIENT
  Age: 7 Year
  Sex: Male
  Weight: 30.385 kg

DRUGS (1)
  1. VYVANSE [Suspect]
     Indication: PRODUCT USED FOR UNKNOWN INDICATION
     Dosage: 20 MG, UNKNOWN
     Route: 048

REACTIONS (3)
  - SUICIDAL IDEATION [None]
  - HOMICIDAL IDEATION [None]
  - AGGRESSION [None]
